FAERS Safety Report 6168761-1 (Version None)
Quarter: 2009Q2

REPORT INFORMATION
  Report Type: 
  Country: None (occurrence: None)
  Receive Date: 20090427
  Receipt Date: 20090421
  Transmission Date: 20091009
  Serious: Yes (Death)
  Sender: FDA-Public Use
  Company Number: US-SANOFI-SYNTHELABO-A03200901147

PATIENT
  Sex: Female
  Weight: 69.9 kg

DRUGS (6)
  1. LEUCOVORIN CALCIUM [Concomitant]
     Indication: COLORECTAL CANCER METASTATIC
     Dosage: UNK
     Route: 065
  2. AVASTIN [Concomitant]
     Indication: COLORECTAL CANCER METASTATIC
     Dosage: UNK
     Route: 065
  3. FLUOROURACIL [Concomitant]
     Indication: COLORECTAL CANCER METASTATIC
     Dosage: UNK
     Route: 065
  4. ELOXATIN [Suspect]
     Indication: COLORECTAL CANCER METASTATIC
     Route: 042
     Dates: start: 20090312
  5. LOTREL [Concomitant]
     Indication: DRUG USE FOR UNKNOWN INDICATION
     Route: 065
  6. REMERON [Concomitant]
     Indication: DRUG USE FOR UNKNOWN INDICATION
     Route: 065

REACTIONS (4)
  - BLOOD URINE PRESENT [None]
  - CHEST PAIN [None]
  - DIARRHOEA [None]
  - DISEASE PROGRESSION [None]
